FAERS Safety Report 4693965-4 (Version None)
Quarter: 2005Q2

REPORT INFORMATION
  Report Type: 
  Country: None (occurrence: None)
  Receive Date: 20050617
  Receipt Date: 20050310
  Transmission Date: 20051028
  Serious: Yes (Hospitalization, Other)
  Sender: FDA-Public Use
  Company Number: US-MERCK-0503USA02334

PATIENT
  Age: 64 Year
  Sex: Female
  Weight: 65 kg

DRUGS (30)
  1. LEVAQUIN [Concomitant]
     Route: 065
  2. RHINOCORT [Concomitant]
     Route: 065
  3. PROTONIX [Concomitant]
     Route: 065
  4. VIOXX [Suspect]
     Indication: ARTHRITIS
     Route: 048
     Dates: start: 19991101, end: 20040901
  5. VIOXX [Suspect]
     Indication: ARTHRALGIA
     Route: 048
     Dates: start: 19991101, end: 20040901
  6. PREMARIN [Concomitant]
     Route: 065
     Dates: start: 19990101
  7. LIPITOR [Concomitant]
     Route: 065
     Dates: start: 19981101
  8. TRICOR [Concomitant]
     Route: 065
     Dates: start: 20000401
  9. PREVACID [Concomitant]
     Route: 065
  10. DILTIAZEM HCL [Concomitant]
     Route: 065
     Dates: start: 20020101
  11. ZYRTEC [Concomitant]
     Route: 065
  12. FOSAMAX [Concomitant]
     Route: 065
  13. FLONASE [Concomitant]
     Route: 065
  14. ACETAMINOPHEN AND HYDROCODONE BITARTRATE [Concomitant]
     Route: 065
  15. SULFAMETHOXAZOLE AND TRIMETHOPRIM [Concomitant]
     Route: 065
  16. ALLEGRA [Concomitant]
     Route: 065
  17. PENLAC [Concomitant]
     Route: 065
  18. TENORMIN [Concomitant]
     Route: 065
     Dates: start: 20000901
  19. ZESTRIL [Concomitant]
     Route: 065
     Dates: start: 20000901
  20. NITROQUICK [Concomitant]
     Route: 065
     Dates: start: 20000901
  21. IMDUR [Concomitant]
     Route: 065
     Dates: start: 20000901
  22. GENTAMICIN [Concomitant]
     Route: 065
  23. NORVASC [Concomitant]
     Route: 065
     Dates: start: 20020101
  24. HYDROCHLOROTHIAZIDE [Concomitant]
     Route: 065
     Dates: start: 20000201, end: 20030515
  25. NAPROXEN [Concomitant]
     Route: 065
     Dates: start: 20020801, end: 20021101
  26. METHYLPREDNISOLONE [Concomitant]
     Route: 065
  27. TRIAMTERENE [Concomitant]
     Route: 065
  28. ZOLOFT [Concomitant]
     Route: 065
     Dates: start: 20030501, end: 20030801
  29. EFFEXOR [Concomitant]
     Route: 065
  30. NEURONTIN [Concomitant]
     Route: 065
     Dates: start: 20030801

REACTIONS (25)
  - ACCELERATED HYPERTENSION [None]
  - ANGINA PECTORIS [None]
  - ARTERIOSPASM CORONARY [None]
  - ASTHENIA [None]
  - ATHEROSCLEROSIS [None]
  - BACK PAIN [None]
  - CHEST PAIN [None]
  - CORONARY ARTERY STENOSIS [None]
  - DEEP VEIN THROMBOSIS [None]
  - DEPRESSION [None]
  - DYSPNOEA [None]
  - EMOTIONAL DISORDER [None]
  - EMOTIONAL DISTRESS [None]
  - FATIGUE [None]
  - FOOT FRACTURE [None]
  - GASTROOESOPHAGEAL REFLUX DISEASE [None]
  - HYPERHIDROSIS [None]
  - MITRAL VALVE INCOMPETENCE [None]
  - MYOCARDIAL INFARCTION [None]
  - NAUSEA [None]
  - NECK PAIN [None]
  - OEDEMA PERIPHERAL [None]
  - PULMONARY EMBOLISM [None]
  - SCAN MYOCARDIAL PERFUSION ABNORMAL [None]
  - SLEEP APNOEA SYNDROME [None]
